FAERS Safety Report 19594189 (Version 1)
Quarter: 2021Q3

REPORT INFORMATION
  Report Type: Other
  Country: US (occurrence: US)
  Receive Date: 20210722
  Receipt Date: 20210722
  Transmission Date: 20211014
  Serious: Yes (Death)
  Sender: FDA-Public Use
  Company Number: US-ROCHE-2874909

PATIENT
  Age: 67 Year
  Sex: Male

DRUGS (4)
  1. TECENTRIQ [Suspect]
     Active Substance: ATEZOLIZUMAB
     Indication: HEPATOCELLULAR CARCINOMA
     Dosage: INFUSE 1200MG INTRAVENOUSLY EVERY 3 WEEK(S), DATE OF TREATMENT (08/OCT/2020).
     Route: 042
  2. AVASTIN [Suspect]
     Active Substance: BEVACIZUMAB
     Indication: HEPATOCELLULAR CARCINOMA
     Dosage: INFUSE 15MG/KG INTRAVENOUSLY EVERY 3 WEEK(S)
     Route: 042
  3. AVASTIN [Suspect]
     Active Substance: BEVACIZUMAB
     Route: 042
     Dates: start: 20201008
  4. AVASTIN [Suspect]
     Active Substance: BEVACIZUMAB
     Dosage: INFUSE 15MG/KG INTRAVENOUSLY EVERY 3 WEEK(S) (TD:
     Route: 042

REACTIONS (1)
  - Death [Fatal]

NARRATIVE: CASE EVENT DATE: 20210306
